FAERS Safety Report 4429490-5 (Version None)
Quarter: 2004Q3

REPORT INFORMATION
  Report Type: 
  Country: None (occurrence: None)
  Receive Date: 20040819
  Receipt Date: 20040609
  Transmission Date: 20050211
  Serious: Yes (Hospitalization)
  Sender: FDA-Public Use
  Company Number: US-ROCHE-370582

PATIENT
  Age: 45 Year
  Sex: Male
  Weight: 102.2 kg

DRUGS (2)
  1. PEG-INTERFERON ALFA 2A (RO 25-8310) [Suspect]
     Route: 058
     Dates: start: 20040407, end: 20040526
  2. RIBAVIRIN [Suspect]
     Route: 048
     Dates: start: 20040407, end: 20040524

REACTIONS (3)
  - BACTERAEMIA [None]
  - DIVERTICULITIS [None]
  - SKIN DISCOLOURATION [None]
